FAERS Safety Report 5953129-0 (Version None)
Quarter: 2008Q4

REPORT INFORMATION
  Report Type: 
  Country: None (occurrence: None)
  Receive Date: 20081031
  Receipt Date: 20080827
  Transmission Date: 20090506
  Serious: Yes (Hospitalization)
  Sender: FDA-Public Use
  Company Number: US024508

PATIENT

DRUGS (3)
  1. PROVIGIL [Suspect]
     Dosage: 200 MG QD ORAL
     Route: 048
     Dates: start: 20080825
  2. VICODIN [Concomitant]
  3. PAIN MEDICATIONS (NOS) [Concomitant]

REACTIONS (2)
  - NERVOUSNESS [None]
  - PSYCHOMOTOR HYPERACTIVITY [None]
